FAERS Safety Report 21575461 (Version 1)
Quarter: 2022Q4

REPORT INFORMATION
  Report Type: Other
  Country: US (occurrence: None)
  Receive Date: 20221110
  Receipt Date: 20221110
  Transmission Date: 20230113
  Serious: Yes (Other)
  Sender: FDA-Public Use
  Company Number: US-ROCHE-3213138

PATIENT
  Age: 57 Year
  Sex: Female
  Weight: 52.664 kg

DRUGS (3)
  1. OCREVUS [Suspect]
     Active Substance: OCRELIZUMAB
     Indication: Relapsing multiple sclerosis
     Dosage: INFUSE 300MG DAY 1 AND DAY 15, THEN 600 MG EVERY 6 MONTHS?LAST INFUSION OF OCREVUS: /APR/2022
     Route: 042
     Dates: start: 202109
  2. XARELTO [Concomitant]
     Active Substance: RIVAROXABAN
  3. POTASSIUM [Concomitant]
     Active Substance: POTASSIUM

REACTIONS (1)
  - Urinary tract infection [Not Recovered/Not Resolved]

NARRATIVE: CASE EVENT DATE: 20220901
